FAERS Safety Report 7961115-4 (Version None)
Quarter: 2011Q4

REPORT INFORMATION
  Report Type: 
  Country: None (occurrence: None)
  Receive Date: 20111202
  Receipt Date: 20111128
  Transmission Date: 20120403
  Serious: Yes (Hospitalization, Other)
  Sender: FDA-Public Use
  Company Number: 2011MA016920

PATIENT
  Sex: Female
  Weight: 68.0396 kg

DRUGS (19)
  1. ACTONEL [Concomitant]
  2. FUROSEMIDE [Concomitant]
  3. PLAVIX [Concomitant]
  4. AMOXICILLIN [Concomitant]
  5. METOCLOPRAMIDE [Suspect]
     Indication: GASTROOESOPHAGEAL REFLUX DISEASE
     Dosage: 10 MG;QID;PO
     Route: 048
     Dates: start: 20060405, end: 20081102
  6. EFFEXOR [Concomitant]
  7. OSMOPREP [Concomitant]
  8. SYNTHROID [Concomitant]
  9. NEXIUM [Concomitant]
  10. XENAZINE [Concomitant]
  11. PROPOXYPHENE HCL AND ACETAMINOPHEN [Concomitant]
  12. DIPHENOXYLATE HCL + ATROPINE SULFATE [Concomitant]
  13. ASPIRIN [Concomitant]
  14. LEVAQUIN [Concomitant]
  15. PERCOCET [Concomitant]
  16. BENZONATATE [Concomitant]
  17. THYROID TAB [Concomitant]
  18. PAROXETINE HCL [Concomitant]
  19. OXYCODONE HCL AND ACETAMINOPHEN [Concomitant]

REACTIONS (40)
  - DYSPEPSIA [None]
  - OROPHARYNGEAL PAIN [None]
  - DRY MOUTH [None]
  - EXCESSIVE EYE BLINKING [None]
  - OEDEMA PERIPHERAL [None]
  - TARDIVE DYSKINESIA [None]
  - NASOPHARYNGITIS [None]
  - HYPOAESTHESIA [None]
  - BRUXISM [None]
  - EXTRAPYRAMIDAL DISORDER [None]
  - DYSKINESIA [None]
  - SUBDURAL HAEMORRHAGE [None]
  - BREATH ODOUR [None]
  - FALL [None]
  - DYSPNOEA EXERTIONAL [None]
  - STRESS [None]
  - GRIMACING [None]
  - GASTROOESOPHAGEAL REFLUX DISEASE [None]
  - COGNITIVE DISORDER [None]
  - INJURY [None]
  - FRACTURE [None]
  - COUGH [None]
  - HYPERREFLEXIA [None]
  - CHEST DISCOMFORT [None]
  - INFLUENZA [None]
  - GASTROENTERITIS VIRAL [None]
  - MUSCLE SPASTICITY [None]
  - MICTURITION URGENCY [None]
  - DYSPHAGIA [None]
  - CHOKING [None]
  - DEMYELINATION [None]
  - CRANIOCEREBRAL INJURY [None]
  - SUBARACHNOID HAEMORRHAGE [None]
  - WRIST FRACTURE [None]
  - SPINAL COMPRESSION FRACTURE [None]
  - PROTRUSION TONGUE [None]
  - TREMOR [None]
  - PAIN [None]
  - RESTLESS LEGS SYNDROME [None]
  - SUBDURAL HAEMATOMA [None]
